FAERS Safety Report 6167036-4 (Version None)
Quarter: 2009Q2

REPORT INFORMATION
  Report Type: 
  Country: None (occurrence: None)
  Receive Date: 20090423
  Receipt Date: 20090423
  Transmission Date: 20091009
  Serious: Yes (Hospitalization)
  Sender: FDA-Public Use
  Company Number: None

PATIENT
  Sex: Male
  Weight: 58.5 kg

DRUGS (2)
  1. LESTAURTINIB [Suspect]
     Dosage: 4257 MG
  2. CYTARABINE [Suspect]
     Dosage: 37920MG

REACTIONS (9)
  - ABDOMINAL PAIN UPPER [None]
  - BLOOD CULTURE POSITIVE [None]
  - CLOSTRIDIUM DIFFICILE TOXIN TEST POSITIVE [None]
  - ENTEROCOCCAL INFECTION [None]
  - LOWER RESPIRATORY TRACT INFECTION FUNGAL [None]
  - NEUTROPENIA [None]
  - OESOPHAGEAL CANDIDIASIS [None]
  - PAIN IN EXTREMITY [None]
  - PERICARDITIS [None]
